FAERS Safety Report 9818209 (Version 1)
Quarter: 2013Q4

REPORT INFORMATION
  Report Type: Spontaneous
  Country: US (occurrence: None)
  Receive Date: 20131223
  Receipt Date: 20131223
  Transmission Date: 20140711
  Serious: No
  Sender: FDA-Public Use
  Company Number: 220044

PATIENT
  Sex: Male

DRUGS (1)
  1. PICATO (0.015 %, GEL) [Suspect]
     Indication: ACTINIC KERATOSIS
     Route: 061
     Dates: start: 20121220, end: 20121221

REACTIONS (7)
  - Application site pain [None]
  - Application site pain [None]
  - Application site erythema [None]
  - Application site irritation [None]
  - Skin sensitisation [None]
  - Incorrect dose administered [None]
  - Drug administered at inappropriate site [None]
